FAERS Safety Report 7207006-8 (Version None)
Quarter: 2011Q1

REPORT INFORMATION
  Report Type: 
  Country: None (occurrence: None)
  Receive Date: 20110103
  Receipt Date: 20101221
  Transmission Date: 20110831
  Serious: Yes (Other)
  Sender: FDA-Public Use
  Company Number: B0425014A

PATIENT
  Age: 57 Year
  Sex: Female

DRUGS (6)
  1. CLOBAZAM [Concomitant]
     Dosage: 10MG PER DAY
     Route: 065
  2. ACETAMINOPHEN [Concomitant]
     Dosage: 1G FOUR TIMES PER DAY
     Route: 065
  3. LAMOTRIGINE [Suspect]
     Dosage: 75MG PER DAY
     Route: 065
     Dates: start: 20040219
  4. EMOLLIENT (UNSPECIFIED) [Concomitant]
     Indication: ECZEMA
     Route: 065
  5. VALPROIC ACID [Concomitant]
     Dosage: 700MG TWICE PER DAY
     Route: 065
  6. LOPERAMIDE [Concomitant]
     Dosage: 2MG AS REQUIRED
     Route: 065

REACTIONS (5)
  - INTERSTITIAL LUNG DISEASE [None]
  - OXYGEN SATURATION DECREASED [None]
  - CYANOSIS [None]
  - DYSPNOEA [None]
  - TACHYCARDIA [None]
